FAERS Safety Report 19090221 (Version 1)
Quarter: 2021Q2

REPORT INFORMATION
  Report Type: Spontaneous
  Country: US (occurrence: US)
  Receive Date: 20210404
  Receipt Date: 20210404
  Transmission Date: 20210717
  Serious: No
  Sender: FDA-Public Use
  Company Number: US-ORGANON-O2103USA002335

PATIENT
  Age: 22 Year
  Sex: Female
  Weight: 74.38 kg

DRUGS (1)
  1. NEXPLANON [Suspect]
     Active Substance: ETONOGESTREL
     Indication: CONTRACEPTION
     Dosage: IMPLANT (68 MG/ ONCE)
     Route: 059
     Dates: start: 20200622, end: 20200730

REACTIONS (1)
  - Depression [Unknown]

NARRATIVE: CASE EVENT DATE: 202006
